FAERS Safety Report 5120432-6 (Version None)
Quarter: 2006Q4

REPORT INFORMATION
  Report Type: 
  Country: None (occurrence: None)
  Receive Date: 20061002
  Receipt Date: 20060921
  Transmission Date: 20070319
  Serious: Yes (Death, Hospitalization, Other)
  Sender: FDA-Public Use
  Company Number: CA200608000168

PATIENT
  Age: 3 Week
  Sex: Female
  Weight: 0.9 kg

DRUGS (5)
  1. ZYPREXA ZYDIS [Suspect]
     Dosage: TRANSPLACENTAL
     Route: 064
     Dates: start: 20060311, end: 20060424
  2. CANNABIS (CANNABIS) [Concomitant]
  3. VITAMINS [Concomitant]
  4. FERROUS SULFATE (FERROUS SULFATE0 [Concomitant]
  5. NICOTINE [Concomitant]

REACTIONS (5)
  - CAESAREAN SECTION [None]
  - DEATH NEONATAL [None]
  - DRUG EXPOSURE DURING PREGNANCY [None]
  - PREMATURE BABY [None]
  - SMALL FOR DATES BABY [None]
